FAERS Safety Report 9452711 (Version 1)
Quarter: 2013Q3

REPORT INFORMATION
  Report Type: Spontaneous
  Country: US (occurrence: None)
  Receive Date: 20130808
  Receipt Date: 20130808
  Transmission Date: 20140515
  Serious: Yes (Hospitalization)
  Sender: FDA-Public Use
  Company Number: None

PATIENT
  Age: 54 Year
  Sex: Male
  Weight: 57.1 kg

DRUGS (1)
  1. CISPLATIN [Suspect]
     Dosage: 35 FX IN 6 WEEKS 170 MG
     Route: 042

REACTIONS (5)
  - Anxiety [None]
  - Pain [None]
  - Dyspnoea [None]
  - Nutritional supplementation [None]
  - Constipation [None]
